FAERS Safety Report 8356878-2 (Version None)
Quarter: 2012Q2

REPORT INFORMATION
  Report Type: 
  Country: None (occurrence: None)
  Receive Date: 20120514
  Receipt Date: 20120511
  Transmission Date: 20120825
  Serious: No
  Sender: FDA-Public Use
  Company Number: US-PFIZER INC-2012115753

PATIENT
  Sex: Female

DRUGS (1)
  1. EFFEXOR XR [Suspect]
     Dosage: 300 MG, DAILY

REACTIONS (4)
  - NAUSEA [None]
  - MALAISE [None]
  - HYPERHIDROSIS [None]
  - TREMOR [None]
